FAERS Safety Report 21232324 (Version 2)
Quarter: 2022Q3

REPORT INFORMATION
  Report Type: Report from Study
  Country: US (occurrence: None)
  Receive Date: 20220819
  Receipt Date: 20220922
  Transmission Date: 20221026
  Serious: Yes (Other)
  Sender: FDA-Public Use
  Company Number: US-Merck Healthcare KGaA-9328846

PATIENT
  Sex: Female

DRUGS (2)
  1. REBIF [Suspect]
     Active Substance: INTERFERON BETA-1A
     Indication: Multiple sclerosis
     Dosage: REBI-JECT II/MANUAL
     Route: 058
     Dates: start: 20190916
  2. REBIF [Suspect]
     Active Substance: INTERFERON BETA-1A
     Route: 058

REACTIONS (12)
  - Haematemesis [Unknown]
  - Gallbladder disorder [Unknown]
  - Gastrooesophageal reflux disease [Unknown]
  - Dyspepsia [Unknown]
  - Gastrointestinal disorder [Unknown]
  - Vomiting [Unknown]
  - Feeling abnormal [Unknown]
  - Temperature intolerance [Unknown]
  - Dysphagia [Unknown]
  - Constipation [Unknown]
  - Diarrhoea [Unknown]
  - Weight increased [Unknown]
